FAERS Safety Report 7414627-6 (Version None)
Quarter: 2011Q2

REPORT INFORMATION
  Report Type: 
  Country: None (occurrence: None)
  Receive Date: 20110414
  Receipt Date: 20110406
  Transmission Date: 20111010
  Serious: Yes (Hospitalization)
  Sender: FDA-Public Use
  Company Number: BR-US-EMD SERONO, INC.-7023863

PATIENT
  Sex: Female

DRUGS (5)
  1. PREDNISONE [Concomitant]
  2. REBIF [Suspect]
     Indication: RELAPSING-REMITTING MULTIPLE SCLEROSIS
     Route: 058
     Dates: start: 20070703
  3. WARFARIN [Concomitant]
  4. CALCIUM SANDOZ [Concomitant]
  5. CALCITRIOL [Concomitant]

REACTIONS (4)
  - THROMBOSIS [None]
  - ASTHENIA [None]
  - CEREBRAL VENOUS THROMBOSIS [None]
  - DYSARTHRIA [None]
